FAERS Safety Report 24144213 (Version 1)
Quarter: 2024Q3

REPORT INFORMATION
  Report Type: Spontaneous
  Country: US (occurrence: US)
  Receive Date: 20240728
  Receipt Date: 20240728
  Transmission Date: 20241017
  Serious: No
  Sender: LUPIN
  Company Number: US-LUPIN PHARMACEUTICALS INC.-2024-06731

PATIENT

DRUGS (1)
  1. BUPROPION HYDROCHLORIDE [Suspect]
     Active Substance: BUPROPION HYDROCHLORIDE
     Indication: Product used for unknown indication
     Dosage: 150 MG
     Route: 065

REACTIONS (6)
  - Urticaria [Unknown]
  - Pruritus [Recovering/Resolving]
  - Hypersensitivity [Unknown]
  - Erythema of eyelid [Unknown]
  - Erythema [Recovering/Resolving]
  - Periorbital swelling [Unknown]
